FAERS Safety Report 24381998 (Version 1)
Quarter: 2024Q4

REPORT INFORMATION
  Report Type: Spontaneous
  Country: US (occurrence: US)
  Receive Date: 20241001
  Receipt Date: 20241001
  Transmission Date: 20250114
  Serious: No
  Sender: HIKMA
  Company Number: HIKM2407816

PATIENT
  Sex: Male

DRUGS (1)
  1. DEXAMETHASONE [Suspect]
     Active Substance: DEXAMETHASONE
     Indication: Mucous membrane pemphigoid
     Dosage: UNKNOWN
     Route: 065

REACTIONS (2)
  - Tooth injury [Unknown]
  - Dental caries [Unknown]
